FAERS Safety Report 9753818 (Version 2)
Quarter: 2014Q1

REPORT INFORMATION
  Report Type: Spontaneous
  Country: IT (occurrence: IT)
  Receive Date: 20131213
  Receipt Date: 20140221
  Transmission Date: 20141002
  Serious: Yes (Hospitalization)
  Sender: FDA-Public Use
  Company Number: CHNY2013IT002846

PATIENT
  Age: 24 Year
  Sex: Male

DRUGS (3)
  1. IBUPROFEN [Suspect]
     Indication: SUICIDE ATTEMPT
     Dosage: 6 G, ONCE/SINGLE
     Route: 048
     Dates: start: 20131201, end: 20131201
  2. IBUPROFEN [Suspect]
     Indication: OFF LABEL USE
  3. TACHIDOL [Suspect]
     Indication: SUICIDE ATTEMPT
     Dosage: 8 DF, ONCE/SINGLE
     Route: 048
     Dates: start: 20131201, end: 20131201

REACTIONS (3)
  - Suicide attempt [Recovering/Resolving]
  - Drug abuse [Recovering/Resolving]
  - Tachycardia [Unknown]
